FAERS Safety Report 8922941 (Version 1)
Quarter: 2012Q4

REPORT INFORMATION
  Report Type: 
  Country: AU (occurrence: AU)
  Receive Date: 20121123
  Receipt Date: 20121123
  Transmission Date: 20130627
  Serious: Yes (Other)
  Sender: FDA-Public Use
  Company Number: AU-PFIZER INC-2012287179

PATIENT
  Sex: Male

DRUGS (2)
  1. CAVERJECT IMPULSE [Suspect]
  2. WARFARIN [Concomitant]

REACTIONS (1)
  - Haemorrhage [Unknown]
